FAERS Safety Report 6344405-0 (Version None)
Quarter: 2009Q3

REPORT INFORMATION
  Report Type: 
  Country: None (occurrence: None)
  Receive Date: 20090908
  Receipt Date: 20090827
  Transmission Date: 20100115
  Serious: Yes (Other)
  Sender: FDA-Public Use
  Company Number: PHEH2009US09993

PATIENT
  Sex: Male
  Weight: 59.41 kg

DRUGS (5)
  1. ZOMETA [Suspect]
     Indication: METASTASES TO BONE
     Dosage: 4 MG, MONTHLY
     Route: 042
     Dates: start: 20080404, end: 20090324
  2. ZOMETA [Suspect]
     Indication: MULTIPLE MYELOMA
  3. DECADRON                                /CAN/ [Concomitant]
  4. REVLIMID [Concomitant]
  5. VELCADE [Concomitant]

REACTIONS (2)
  - FISTULA [None]
  - SKIN LESION [None]
